FAERS Safety Report 24248812 (Version 1)
Quarter: 2024Q3

REPORT INFORMATION
  Report Type: Spontaneous
  Country: US (occurrence: US)
  Receive Date: 20240826
  Receipt Date: 20240826
  Transmission Date: 20241016
  Serious: No
  Sender: ROCHE
  Company Number: US-ROCHE-10000064510

PATIENT
  Sex: Female

DRUGS (1)
  1. ALECENSA [Suspect]
     Active Substance: ALECTINIB HYDROCHLORIDE
     Indication: Non-small cell lung cancer
     Dosage: CAPSULE COMES AS 600 MG. PATIENT TAKES 2 CAPSULES DAILY. TOTAL DOSAGE DAILY IS 1200 MG.
     Route: 048
     Dates: start: 202406

REACTIONS (1)
  - Blood creatine phosphokinase increased [Not Recovered/Not Resolved]
